FAERS Safety Report 19888877 (Version 3)
Quarter: 2021Q4

REPORT INFORMATION
  Report Type: Spontaneous
  Country: US (occurrence: US)
  Receive Date: 20210927
  Receipt Date: 20211119
  Transmission Date: 20220303
  Serious: No
  Sender: FDA-Public Use
  Company Number: US-009507513-2109USA006111

PATIENT
  Age: 82 Year
  Sex: Male

DRUGS (6)
  1. KEYTRUDA [Suspect]
     Active Substance: PEMBROLIZUMAB
     Indication: Neuroendocrine carcinoma
     Dosage: 200 MILLIGRAM, Q3W
     Route: 042
  2. KEYTRUDA [Suspect]
     Active Substance: PEMBROLIZUMAB
     Indication: Metastases to liver
  3. CARBOPLATIN [Concomitant]
     Active Substance: CARBOPLATIN
     Indication: Neuroendocrine carcinoma
     Dosage: UNK
  4. CARBOPLATIN [Concomitant]
     Active Substance: CARBOPLATIN
     Indication: Metastases to liver
  5. ETOPOSIDE [Concomitant]
     Active Substance: ETOPOSIDE
     Indication: Neuroendocrine carcinoma
     Dosage: UNK
  6. ETOPOSIDE [Concomitant]
     Active Substance: ETOPOSIDE
     Indication: Metastases to liver

REACTIONS (1)
  - Product use in unapproved indication [Unknown]
